FAERS Safety Report 19676913 (Version 1)
Quarter: 2021Q3

REPORT INFORMATION
  Report Type: Report from Study
  Country: US (occurrence: US)
  Receive Date: 20210809
  Receipt Date: 20210809
  Transmission Date: 20211014
  Serious: Yes (Other)
  Sender: FDA-Public Use
  Company Number: US-ASTELLAS-2021US029340

PATIENT
  Age: 72 Year
  Sex: Male

DRUGS (1)
  1. ASG?22CE [Suspect]
     Active Substance: ENFORTUMAB VEDOTIN
     Indication: TRANSITIONAL CELL CARCINOMA
     Dosage: 1.25 MG/KG, CYCLIC (ON DAYS 1, 8 AND 15 OF 28 DAY CYCLE)
     Route: 042
     Dates: start: 20201118, end: 20210714

REACTIONS (1)
  - Neutropenia [Recovered/Resolved]

NARRATIVE: CASE EVENT DATE: 20201209
